FAERS Safety Report 4438716-3 (Version None)
Quarter: 2004Q3

REPORT INFORMATION
  Report Type: 
  Country: None (occurrence: None)
  Receive Date: 20040830
  Receipt Date: 20040830
  Transmission Date: 20050211
  Serious: Yes (Other)
  Sender: FDA-Public Use
  Company Number: None

PATIENT
  Age: 39 Year
  Sex: Female
  Weight: 47.6277 kg

DRUGS (2)
  1. PRILOSEC OTC [Suspect]
     Indication: GASTRIC DISORDER
     Dosage: 1 TABLET ORAL
     Route: 048
     Dates: start: 20040101, end: 20040827
  2. ZOLOFT [Concomitant]

REACTIONS (3)
  - DIZZINESS [None]
  - HYPERHIDROSIS [None]
  - PALPITATIONS [None]
